FAERS Safety Report 9309889 (Version 3)
Quarter: 2014Q1

REPORT INFORMATION
  Report Type: Report from Study
  Country: GR (occurrence: GR)
  Receive Date: 20130526
  Receipt Date: 20140127
  Transmission Date: 20141002
  Serious: Yes (Hospitalization, Other)
  Sender: FDA-Public Use
  Company Number: GR-US-EMD SERONO, INC.-7212373

PATIENT
  Age: 18 Year
  Sex: Male
  Weight: 70 kg

DRUGS (2)
  1. REBIF [Suspect]
     Indication: MULTIPLE SCLEROSIS
     Route: 058
     Dates: start: 200904, end: 201005
  2. REBIF [Suspect]
     Route: 058
     Dates: start: 201005

REACTIONS (5)
  - Personality disorder [Recovered/Resolved]
  - Abnormal behaviour [Recovered/Resolved]
  - Aggression [Not Recovered/Not Resolved]
  - Central nervous system lesion [Unknown]
  - Aggression [Unknown]
